FAERS Safety Report 8322633-2 (Version None)
Quarter: 2012Q2

REPORT INFORMATION
  Report Type: 
  Country: None (occurrence: None)
  Receive Date: 20120430
  Receipt Date: 20120419
  Transmission Date: 20120825
  Serious: Yes (Other)
  Sender: FDA-Public Use
  Company Number: DE-ELI_LILLY_AND_COMPANY-DE201112005549

PATIENT
  Sex: Male

DRUGS (1)
  1. FORTEO [Suspect]
     Indication: OSTEOPOROSIS
     Dosage: UNK, QD
     Route: 058
     Dates: start: 20111019, end: 20120101

REACTIONS (5)
  - RASH [None]
  - GAIT DISTURBANCE [None]
  - DIZZINESS [None]
  - OEDEMA PERIPHERAL [None]
  - JOINT SWELLING [None]
